FAERS Safety Report 6892981-1 (Version None)
Quarter: 2010Q3

REPORT INFORMATION
  Report Type: 
  Country: None (occurrence: None)
  Receive Date: 20100731
  Receipt Date: 20081210
  Transmission Date: 20110219
  Serious: No
  Sender: FDA-Public Use
  Company Number: US-PFIZER INC-2008098045

PATIENT
  Sex: Male
  Weight: 83 kg

DRUGS (9)
  1. CAMPTOSAR [Suspect]
     Dosage: 1 EVERY 2 WEEKS
     Route: 042
     Dates: start: 20080601
  2. LEUCOVORIN CALCIUM [Concomitant]
  3. FLUOROURACIL [Concomitant]
  4. KYTRIL [Concomitant]
  5. DEXAMETHASONE [Concomitant]
  6. BENADRYL [Concomitant]
  7. ATROPINE [Concomitant]
  8. TAGAMET [Concomitant]
  9. CLARITIN [Concomitant]

REACTIONS (4)
  - BLISTER [None]
  - ERYTHEMA [None]
  - PRURITUS [None]
  - RASH [None]
